FAERS Safety Report 9701194 (Version 3)
Quarter: 2013Q4

REPORT INFORMATION
  Report Type: Spontaneous
  Country: PT (occurrence: PT)
  Receive Date: 20131121
  Receipt Date: 20131205
  Transmission Date: 20140711
  Serious: Yes (Death)
  Sender: FDA-Public Use
  Company Number: PT-PFIZER INC-2013317624

PATIENT
  Sex: Male

DRUGS (1)
  1. ESTRACYT [Suspect]
     Indication: PROSTATE CANCER
     Dosage: 280 MG (2DF), 2X/DAY
     Route: 048

REACTIONS (4)
  - Disease progression [Fatal]
  - Prostate cancer [Fatal]
  - Nausea [Unknown]
  - Diet refusal [Unknown]
